FAERS Safety Report 8060153-3 (Version None)
Quarter: 2012Q1

REPORT INFORMATION
  Report Type: 
  Country: None (occurrence: None)
  Receive Date: 20120120
  Receipt Date: 20120110
  Transmission Date: 20120608
  Serious: Yes (Death, Other)
  Sender: FDA-Public Use
  Company Number: GB-JNJFOC-20120103139

PATIENT
  Age: 76 Year
  Sex: Male
  Weight: 66 kg

DRUGS (3)
  1. REMICADE [Suspect]
     Indication: RHEUMATOID ARTHRITIS
     Route: 042
     Dates: start: 20030708, end: 20040325
  2. STEROIDS NOS [Concomitant]
     Indication: RHEUMATOID ARTHRITIS
  3. METHOTREXATE [Concomitant]

REACTIONS (2)
  - MESOTHELIOMA MALIGNANT [None]
  - LOWER RESPIRATORY TRACT INFECTION [None]
